FAERS Safety Report 8869396 (Version 1)
Quarter: 2012Q4

REPORT INFORMATION
  Report Type: Spontaneous
  Country: US (occurrence: None)
  Receive Date: 20121024
  Receipt Date: 20121024
  Transmission Date: 20130627
  Serious: Yes (Other)
  Sender: FDA-Public Use
  Company Number: EUS-2012-00851

PATIENT
  Age: 53 Year
  Sex: Male

DRUGS (5)
  1. ASPARAGINASE [Suspect]
     Indication: T-CELL LYMPHOMA
     Dosage: On day 8, 10, 12, 14, 16, 18 and day 20, Intravenous (not otherwise specified)
  2. DEXAMEHTASONE (DEXAMETHASONE) (DEXAMETHASONE) [Concomitant]
  3. METHOTREXATE (METHOTREXATE) (METHOTREXATE) [Concomitant]
  4. ETOPOSIDE (ETOPOSIDE) (ETOPOSIDE) [Concomitant]
  5. IFOSFAMIE (IFOSFAMIDE) (IFOSFAMIDE) [Concomitant]

REACTIONS (2)
  - Hypertriglyceridaemia [None]
  - Blood cholesterol increased [None]
